FAERS Safety Report 6310308-0 (Version None)
Quarter: 2009Q3

REPORT INFORMATION
  Report Type: 
  Country: None (occurrence: None)
  Receive Date: 20090814
  Receipt Date: 20090806
  Transmission Date: 20100115
  Serious: Yes (Other)
  Sender: FDA-Public Use
  Company Number: PHHY2009DE33278

PATIENT
  Age: 14 Year
  Sex: Female

DRUGS (1)
  1. RITALIN LA [Suspect]
     Dosage: 30MG DAILY
     Route: 048
     Dates: start: 20090101

REACTIONS (3)
  - AGEUSIA [None]
  - DEPRESSION [None]
  - DRUG EFFECT DECREASED [None]
